FAERS Safety Report 14620209 (Version 1)
Quarter: 2018Q1

REPORT INFORMATION
  Report Type: Spontaneous
  Country: US (occurrence: US)
  Receive Date: 20180309
  Receipt Date: 20180309
  Transmission Date: 20180509
  Serious: Yes (Hospitalization, Disabling)
  Sender: FDA-Public Use
  Company Number: None

PATIENT
  Age: 58 Year
  Sex: Male
  Weight: 71.4 kg

DRUGS (2)
  1. OXALIPLATIN. [Concomitant]
     Active Substance: OXALIPLATIN
  2. FLUOROURACIL. [Suspect]
     Active Substance: FLUOROURACIL
     Indication: CHEMOTHERAPY
     Route: 041
     Dates: start: 20180220, end: 20180222

REACTIONS (5)
  - Mental status changes [None]
  - Abnormal behaviour [None]
  - Vomiting [None]
  - Mental disorder [None]
  - Blood glucose decreased [None]

NARRATIVE: CASE EVENT DATE: 20180220
